FAERS Safety Report 8093469-5 (Version None)
Quarter: 2012Q1

REPORT INFORMATION
  Report Type: 
  Country: None (occurrence: None)
  Receive Date: 20120129
  Receipt Date: 20110923
  Transmission Date: 20120608
  Serious: Yes (Other)
  Sender: FDA-Public Use
  Company Number: US-ABBOTT-11P-163-0851279-00

PATIENT
  Sex: Female
  Weight: 67.192 kg

DRUGS (14)
  1. HUMIRA [Suspect]
     Indication: RHEUMATOID ARTHRITIS
     Route: 058
     Dates: start: 20080101, end: 20110608
  2. MECLIZINE [Concomitant]
     Indication: PRODUCT USED FOR UNKNOWN INDICATION
     Dosage: 1 IN 1 DAY, IN THE EVENING
  3. MULTIVITAMINS WITH IRON [Concomitant]
     Indication: VITAMIN SUPPLEMENTATION
  4. POTASSIUM CHLORIDE [Concomitant]
     Indication: PRODUCT USED FOR UNKNOWN INDICATION
  5. METHOTREXATE [Concomitant]
     Indication: RHEUMATOID ARTHRITIS
     Dosage: WEEKLY, SIX TABS ON SUNDAY ONLY
     Dates: start: 20110401, end: 20110601
  6. VITAMIN E [Concomitant]
     Indication: VITAMIN SUPPLEMENTATION
  7. NAPROXEN [Concomitant]
     Indication: RHEUMATOID ARTHRITIS
  8. FOLIC ACID [Concomitant]
     Indication: VITAMIN SUPPLEMENTATION
     Dates: end: 20110701
  9. ADDERALL 5 [Concomitant]
     Indication: ATTENTION DEFICIT/HYPERACTIVITY DISORDER
     Dosage: 1 IN 1 DAY, IN THE MORNING
  10. LEVOTHYROXINE SODIUM [Concomitant]
     Indication: HYPOTHYROIDISM
  11. ADVAIR DISKUS 100/50 [Concomitant]
     Indication: ASTHMA
     Dosage: 500/50, 1 PUFF TWICE DAILY
  12. ZYRTEC [Concomitant]
     Indication: PRODUCT USED FOR UNKNOWN INDICATION
  13. CALCIUM +D [Concomitant]
     Indication: MINERAL SUPPLEMENTATION
     Dosage: 600/400, TWO TABS TWICE A DAY
  14. MULTIVITAMINS WITH IRON [Concomitant]
     Indication: MINERAL SUPPLEMENTATION

REACTIONS (4)
  - BRONCHITIS [None]
  - LUNG INFILTRATION [None]
  - ACUTE SINUSITIS [None]
  - BRONCHOPULMONARY ASPERGILLOSIS [None]
